FAERS Safety Report 18815895 (Version 1)
Quarter: 2021Q1

REPORT INFORMATION
  Report Type: Spontaneous
  Country: US (occurrence: US)
  Receive Date: 20210129
  Receipt Date: 20210129
  Transmission Date: 20210419
  Serious: Yes (Other)
  Sender: FDA-Public Use
  Company Number: None

PATIENT
  Age: 62 Year
  Sex: Male
  Weight: 58.97 kg

DRUGS (4)
  1. OXALIPLATIN 100MG [Suspect]
     Active Substance: OXALIPLATIN
     Indication: COLON CANCER
     Dosage: ?          OTHER ROUTE:IV?
  2. ALOXI [Concomitant]
     Active Substance: PALONOSETRON HYDROCHLORIDE
  3. DECADRON [Concomitant]
     Active Substance: DEXAMETHASONE
  4. OXALIPLATIN 50MG [Suspect]
     Active Substance: OXALIPLATIN

REACTIONS (2)
  - Pruritus [None]
  - Ear pruritus [None]

NARRATIVE: CASE EVENT DATE: 20200922
